FAERS Safety Report 8567702-7 (Version None)
Quarter: 2012Q3

REPORT INFORMATION
  Report Type: 
  Country: None (occurrence: None)
  Receive Date: 20120803
  Receipt Date: 20100219
  Transmission Date: 20120928
  Serious: Yes (Disabling)
  Sender: FDA-Public Use
  Company Number: US-GLAXOSMITHKLINE-A0845465A

PATIENT
  Age: 35 Year
  Sex: Female

DRUGS (2)
  1. PAXIL [Suspect]
     Indication: GENERALISED ANXIETY DISORDER
     Route: 048
     Dates: start: 20030101, end: 20070101
  2. NO CONCURRENT MEDICATION [Concomitant]

REACTIONS (18)
  - PERSONALITY CHANGE [None]
  - PANIC ATTACK [None]
  - INSOMNIA [None]
  - MENTAL DISORDER [None]
  - FATIGUE [None]
  - ANGER [None]
  - TINNITUS [None]
  - CYSTITIS [None]
  - PERFORMANCE STATUS DECREASED [None]
  - INDIFFERENCE [None]
  - DYSPHONIA [None]
  - PARANOIA [None]
  - WEIGHT INCREASED [None]
  - MEMORY IMPAIRMENT [None]
  - FLAT AFFECT [None]
  - ECONOMIC PROBLEM [None]
  - HEARING IMPAIRED [None]
  - AFFECT LABILITY [None]
